FAERS Safety Report 17845743 (Version 1)
Quarter: 2020Q2

REPORT INFORMATION
  Report Type: Spontaneous
  Country: ES (occurrence: ES)
  Receive Date: 20200601
  Receipt Date: 20200601
  Transmission Date: 20200714
  Serious: Yes (Disabling, Other)
  Sender: FDA-Public Use
  Company Number: ES-JNJFOC-20200526465

PATIENT
  Age: 18 Year
  Sex: Female

DRUGS (4)
  1. STELARA [Suspect]
     Active Substance: USTEKINUMAB
     Indication: CROHN^S DISEASE
     Route: 058
     Dates: end: 201905
  2. STELARA [Suspect]
     Active Substance: USTEKINUMAB
     Indication: PUSTULAR PSORIASIS
  3. CYCLOSPORINE. [Suspect]
     Active Substance: CYCLOSPORINE
  4. CYCLOSPORINE. [Suspect]
     Active Substance: CYCLOSPORINE
     Indication: PUSTULAR PSORIASIS

REACTIONS (5)
  - Osteitis [Unknown]
  - Crohn^s disease [Recovering/Resolving]
  - Iron deficiency anaemia [Unknown]
  - Sacroiliitis [Recovering/Resolving]
  - Pustular psoriasis [Recovering/Resolving]
